FAERS Safety Report 18093579 (Version 7)
Quarter: 2020Q4

REPORT INFORMATION
  Report Type: Spontaneous
  Country: US (occurrence: US)
  Receive Date: 20200730
  Receipt Date: 20201105
  Transmission Date: 20210113
  Serious: Yes (Hospitalization, Other)
  Sender: FDA-Public Use
  Company Number: US-PFIZER INC-2020289972

PATIENT
  Age: 76 Year
  Sex: Female

DRUGS (2)
  1. IBRANCE [Suspect]
     Active Substance: PALBOCICLIB
     Indication: BREAST CANCER METASTATIC
     Dosage: 125 MG
  2. IBRANCE [Suspect]
     Active Substance: PALBOCICLIB
     Indication: NEOPLASM RECURRENCE
     Dosage: 125 MG, CYCLIC (ONCE DAILY FOR 21 DAYS ON, 7 DAYS OFF)
     Route: 048

REACTIONS (9)
  - Memory impairment [Unknown]
  - Decreased appetite [Unknown]
  - Gait disturbance [Unknown]
  - Weight decreased [Not Recovered/Not Resolved]
  - Cerebrovascular accident [Unknown]
  - Product taste abnormal [Unknown]
  - Malaise [Unknown]
  - Visual impairment [Unknown]
  - Taste disorder [Recovering/Resolving]

NARRATIVE: CASE EVENT DATE: 202006
